FAERS Safety Report 18408510 (Version 1)
Quarter: 2020Q4

REPORT INFORMATION
  Report Type: Spontaneous
  Country: FR (occurrence: FR)
  Receive Date: 20201021
  Receipt Date: 20201021
  Transmission Date: 20210114
  Serious: Yes (Hospitalization)
  Sender: FDA-Public Use
  Company Number: FR-TEVA-2020-FR-1839772

PATIENT
  Age: 75 Year
  Sex: Male

DRUGS (12)
  1. CIPROFLOXACINE [Suspect]
     Active Substance: CIPROFLOXACIN
     Indication: PNEUMONIA
     Dosage: UNSPECIFIED
     Route: 042
     Dates: start: 202004, end: 202004
  2. PARACETAMOL [Concomitant]
     Active Substance: ACETAMINOPHEN
     Indication: CORONAVIRUS INFECTION
     Dosage: UNSPECIFIED
     Route: 048
     Dates: start: 202003, end: 20200331
  3. ROCEPHINE [Concomitant]
     Active Substance: CEFTRIAXONE SODIUM
     Indication: LUNG DISORDER
     Dosage: UNSPECIFIED
     Route: 048
     Dates: start: 20200325, end: 20200331
  4. XATRAL LP 10 MG, COMPRIME A LIBERATION PROLONGEE [Concomitant]
     Active Substance: ALFUZOSIN
     Dosage: UNIT DOSE : 1 DOSAGE FORMS
     Route: 048
  5. VORICONAZOLE. [Suspect]
     Active Substance: VORICONAZOLE
     Indication: PNEUMONIA
     Dosage: UNSPECIFIED
     Route: 042
     Dates: start: 202004, end: 202004
  6. TAZOBACTAM [Suspect]
     Active Substance: TAZOBACTAM
     Indication: PNEUMONIA
     Dosage: UNSPECIFIED
     Route: 042
     Dates: start: 202004, end: 202004
  7. KARDEGIC [Concomitant]
     Active Substance: ASPIRIN DL-LYSINE
     Dosage: UNIT DOSE : 1 DOSAGE FORMS
     Route: 048
  8. PLAQUENIL [Concomitant]
     Active Substance: HYDROXYCHLOROQUINE SULFATE
     Indication: CORONAVIRUS INFECTION
     Dosage: UNIT DOSE : 3 DOSAGE FORMS
     Route: 048
     Dates: start: 20200325, end: 20200331
  9. CEFTOLOZANE [Suspect]
     Active Substance: CEFTOLOZANE
     Indication: PNEUMONIA
     Dosage: UNSPECIFIED
     Route: 042
     Dates: start: 202004, end: 202004
  10. PRAVASTATINE SODIQUE [Concomitant]
     Active Substance: PRAVASTATIN SODIUM
     Dosage: UNIT DOSE : 10 MG
     Route: 048
  11. NEBIVOLOL. [Concomitant]
     Active Substance: NEBIVOLOL
     Dosage: UNIT DOSE : 5 MG
     Route: 048
  12. ESIDREX [Concomitant]
     Active Substance: HYDROCHLOROTHIAZIDE
     Dosage: UNIT DOSE : 1 DOSAGE FORMS
     Route: 048

REACTIONS (1)
  - Hepatocellular injury [Recovering/Resolving]

NARRATIVE: CASE EVENT DATE: 20200428
